FAERS Safety Report 17842713 (Version 6)
Quarter: 2020Q4

REPORT INFORMATION
  Report Type: Report from Study
  Country: CL (occurrence: CL)
  Receive Date: 20200529
  Receipt Date: 20201026
  Transmission Date: 20210113
  Serious: Yes (Death, Life-Threatening, Hospitalization)
  Sender: FDA-Public Use
  Company Number: CL-JNJFOC-20200529905

PATIENT
  Age: 8 Decade
  Sex: Male
  Weight: 77 kg

DRUGS (2)
  1. REMICADE [Suspect]
     Active Substance: INFLIXIMAB
     Route: 042
     Dates: start: 20190604
  2. REMICADE [Suspect]
     Active Substance: INFLIXIMAB
     Indication: CROHN^S DISEASE
     Route: 042
     Dates: start: 2008

REACTIONS (4)
  - Death [Fatal]
  - Crohn^s disease [Unknown]
  - Colorectal cancer [Unknown]
  - Rectal cancer [Recovering/Resolving]

NARRATIVE: CASE EVENT DATE: 2018
